FAERS Safety Report 23306206 (Version 1)
Quarter: 2023Q4

REPORT INFORMATION
  Report Type: Spontaneous
  Country: US (occurrence: None)
  Receive Date: 20231218
  Receipt Date: 20231218
  Transmission Date: 20240110
  Serious: No
  Sender: FDA-Public Use
  Company Number: US-ARIS GLOBAL-SUP202211-003820

PATIENT
  Sex: Female

DRUGS (2)
  1. TROKENDI XR [Suspect]
     Active Substance: TOPIRAMATE
     Indication: Migraine
     Dates: start: 2022
  2. TROKENDI XR [Suspect]
     Active Substance: TOPIRAMATE
     Indication: Headache

REACTIONS (1)
  - Acne [Unknown]
